FAERS Safety Report 10597857 (Version 1)
Quarter: 2014Q4

REPORT INFORMATION
  Report Type: Spontaneous
  Country: CN (occurrence: CN)
  Receive Date: 20141121
  Receipt Date: 20141121
  Transmission Date: 20150529
  Serious: Yes (Other)
  Sender: FDA-Public Use
  Company Number: CN-PFIZER INC-2014316099

PATIENT
  Age: 17 Year
  Sex: Male

DRUGS (2)
  1. METHYLPREDNISOLONE SODIUM SUCCINATE. [Suspect]
     Active Substance: METHYLPREDNISOLONE SODIUM SUCCINATE
     Indication: NEPHROTIC SYNDROME
     Dosage: 40 MG
     Route: 041
     Dates: start: 20130128
  2. PREDNISONE ACETATE [Concomitant]
     Active Substance: PREDNISONE ACETATE
     Indication: NEPHROTIC SYNDROME
     Dosage: 40MG ONCE IN THE MORNING
     Route: 048
     Dates: start: 20130127, end: 20130128

REACTIONS (6)
  - Dyspnoea [Recovered/Resolved]
  - Hypokalaemia [Recovered/Resolved]
  - Muscular weakness [Recovered/Resolved]
  - Hypoaesthesia [Recovered/Resolved]
  - Chest discomfort [Recovered/Resolved]
  - Electrocardiogram T wave amplitude decreased [Recovered/Resolved]

NARRATIVE: CASE EVENT DATE: 20130128
